FAERS Safety Report 8801067 (Version 1)
Quarter: 2012Q4

REPORT INFORMATION
  Report Type: 
  Country: US (occurrence: US)
  Receive Date: 20120920
  Receipt Date: 20120920
  Transmission Date: 20130627
  Serious: Yes (Other)
  Sender: FDA-Public Use
  Company Number: US-MYLANLABS-2012S1018754

PATIENT
  Age: 62 Year
  Sex: Male

DRUGS (7)
  1. PIPERACILLIN W/TAZOBACTAM /01606301/ [Suspect]
     Route: 065
  2. VANCOMYCIN [Suspect]
     Route: 065
  3. ASPIRIN [Concomitant]
     Route: 065
  4. GABAPENTIN [Concomitant]
     Route: 065
  5. PAROXETINE [Concomitant]
     Route: 065
  6. RANITIDINE [Concomitant]
     Route: 065
  7. TRAMADOL [Concomitant]
     Route: 065

REACTIONS (1)
  - Acute generalised exanthematous pustulosis [Recovering/Resolving]
